FAERS Safety Report 10692541 (Version 1)
Quarter: 2015Q1

REPORT INFORMATION
  Report Type: Spontaneous
  Country: US (occurrence: US)
  Receive Date: 20150106
  Receipt Date: 20150106
  Transmission Date: 20150720
  Serious: No
  Sender: FDA-Public Use
  Company Number: US-PFIZER INC-2015002812

PATIENT
  Age: 39 Year
  Sex: Male
  Weight: 75 kg

DRUGS (10)
  1. FLUOXETINE [Concomitant]
     Active Substance: FLUOXETINE\FLUOXETINE HYDROCHLORIDE
     Indication: POST-TRAUMATIC STRESS DISORDER
     Dosage: 20 MG, IN MORNING
  2. MIRALAX [Concomitant]
     Active Substance: POLYETHYLENE GLYCOL 3350
     Indication: CONSTIPATION
     Dosage: 1 DF, AS NEEDED
  3. NEURONTIN [Suspect]
     Active Substance: GABAPENTIN
     Indication: SPINAL CORD INJURY
  4. ACETAMINOPHEN. [Concomitant]
     Active Substance: ACETAMINOPHEN
     Indication: NEURALGIA
     Dosage: 500 MG, EVERY 4 HRS
  5. SIMVASTATIN. [Concomitant]
     Active Substance: SIMVASTATIN
     Indication: BLOOD CHOLESTEROL INCREASED
     Dosage: 20 MG, NIGHTLY
  6. PRAZOSIN [Concomitant]
     Active Substance: PRAZOSIN
     Indication: BLOOD PRESSURE INCREASED
     Dosage: 1 MG, NIGHTLY
  7. DOXEPIN [Concomitant]
     Active Substance: DOXEPIN
     Indication: SLEEP DISORDER
     Dosage: 2 MG, AT NIGHT
  8. PRAZOSIN [Concomitant]
     Active Substance: PRAZOSIN
     Indication: SLEEP DISORDER
  9. VALIUM [Concomitant]
     Active Substance: DIAZEPAM
     Indication: POST-TRAUMATIC STRESS DISORDER
     Dosage: 10 MG, 3X/DAY
  10. OMEPRAZOLE. [Concomitant]
     Active Substance: OMEPRAZOLE
     Indication: GASTROOESOPHAGEAL REFLUX DISEASE
     Dosage: 20 MG, 2X/DAY

REACTIONS (1)
  - Drug ineffective [Unknown]
